FAERS Safety Report 4575650-2 (Version None)
Quarter: 2005Q1

REPORT INFORMATION
  Report Type: 
  Country: None (occurrence: None)
  Receive Date: 20050209
  Receipt Date: 20050128
  Transmission Date: 20050727
  Serious: Yes (Other)
  Sender: FDA-Public Use
  Company Number: AU-GLAXOSMITHKLINE-B0370238A

PATIENT

DRUGS (1)
  1. IMIGRAN [Suspect]
     Route: 048

REACTIONS (2)
  - APHASIA [None]
  - DYSPHONIA [None]
